FAERS Safety Report 20340698 (Version 3)
Quarter: 2022Q1

REPORT INFORMATION
  Report Type: Spontaneous
  Country: IN (occurrence: IN)
  Receive Date: 20220117
  Receipt Date: 20220207
  Transmission Date: 20220424
  Serious: Yes (Death, Hospitalization)
  Sender: FDA-Public Use
  Company Number: IN-PFIZER INC-202200031792

PATIENT
  Age: 54 Year
  Sex: Female
  Weight: 54 kg

DRUGS (1)
  1. DACOMITINIB [Suspect]
     Active Substance: DACOMITINIB
     Dosage: 30 MG, 2X/DAY
     Route: 048
     Dates: end: 20220105

REACTIONS (4)
  - Respiratory failure [Fatal]
  - Lung consolidation [Fatal]
  - Neoplasm progression [Fatal]
  - Off label use [Unknown]
